FAERS Safety Report 9483734 (Version 2)
Quarter: 2013Q3

REPORT INFORMATION
  Report Type: Spontaneous
  Country: US (occurrence: US)
  Receive Date: 20130828
  Receipt Date: 20130828
  Transmission Date: 20140515
  Serious: Yes (Hospitalization)
  Sender: FDA-Public Use
  Company Number: US-AMGEN-KDL315856

PATIENT
  Age: 34 Year
  Sex: Male
  Weight: 95.3 kg

DRUGS (3)
  1. ENBREL [Suspect]
     Indication: PSORIASIS
     Dosage: 50 MG, 2 TIMES/WK
     Route: 058
     Dates: start: 20051111, end: 200609
  2. MONTELUKAST [Concomitant]
  3. MOMETASONE FUROATE MONOHYDRATE [Concomitant]

REACTIONS (3)
  - Meningitis [Recovered/Resolved]
  - Onychomadesis [Not Recovered/Not Resolved]
  - Psoriasis [Not Recovered/Not Resolved]
